FAERS Safety Report 6001502-7 (Version None)
Quarter: 2008Q4

REPORT INFORMATION
  Report Type: 
  Country: None (occurrence: None)
  Receive Date: 20081215
  Receipt Date: 20071108
  Transmission Date: 20090506
  Serious: No
  Sender: FDA-Public Use
  Company Number: US-AMGEN-KDL251429

PATIENT
  Sex: Female

DRUGS (4)
  1. ENBREL [Suspect]
     Indication: PSORIASIS
     Route: 058
     Dates: start: 20070929, end: 20071005
  2. CYMBALTA [Concomitant]
  3. PREVACID [Concomitant]
  4. LYRICA [Concomitant]

REACTIONS (7)
  - HERPES ZOSTER [None]
  - INJECTION SITE IRRITATION [None]
  - INJECTION SITE PAIN [None]
  - MALAISE [None]
  - OPEN WOUND [None]
  - WOUND COMPLICATION [None]
  - WOUND SECRETION [None]
